FAERS Safety Report 23894861 (Version 1)
Quarter: 2024Q2

REPORT INFORMATION
  Report Type: Spontaneous
  Country: US (occurrence: None)
  Receive Date: 20240524
  Receipt Date: 20240524
  Transmission Date: 20240715
  Serious: No
  Sender: FDA-Public Use
  Company Number: US-ROCHE-3496841

PATIENT
  Age: 73 Year
  Sex: Male

DRUGS (20)
  1. ACTEMRA [Suspect]
     Active Substance: TOCILIZUMAB
     Indication: Giant cell arteritis
     Dosage: 162MG/0.9ML
     Route: 058
     Dates: start: 2021
  2. ACTEMRA [Suspect]
     Active Substance: TOCILIZUMAB
  3. PREDNISONE [Concomitant]
     Active Substance: PREDNISONE
     Route: 048
  4. PREDNISONE [Concomitant]
     Active Substance: PREDNISONE
  5. INSULIN NOS [Concomitant]
     Active Substance: INSULIN NOS
  6. ASPIRIN [Concomitant]
     Active Substance: ASPIRIN
     Route: 048
  7. HUMALOG [Concomitant]
     Active Substance: INSULIN LISPRO
  8. COLESTIPOL [Concomitant]
     Active Substance: COLESTIPOL
  9. GLIMEPIRIDE [Concomitant]
     Active Substance: GLIMEPIRIDE
     Route: 048
  10. LAMOTRIGINE [Concomitant]
     Active Substance: LAMOTRIGINE
     Route: 048
  11. LEVEMIR [Concomitant]
     Active Substance: INSULIN DETEMIR
     Dosage: 20 UNITS EVERY NIGHT AT BED TIME
     Route: 058
  12. LEVOTHYROXINE [Concomitant]
     Active Substance: LEVOTHYROXINE\LEVOTHYROXINE SODIUM
     Route: 048
  13. LORATADINE [Concomitant]
     Active Substance: LORATADINE
     Route: 048
  14. LOSARTAN [Concomitant]
     Active Substance: LOSARTAN
     Route: 048
  15. MELATONIN [Concomitant]
     Active Substance: MELATONIN
     Route: 048
  16. METFORMIN [Concomitant]
     Active Substance: METFORMIN HYDROCHLORIDE
     Route: 048
  17. OMEPRAZOLE [Concomitant]
     Active Substance: DONEPEZIL HYDROCHLORIDE\OMEPRAZOLE\OMEPRAZOLE MAGNESIUM
     Route: 048
  18. METOPROLOL SUCCINATE [Concomitant]
     Active Substance: METOPROLOL SUCCINATE
     Route: 048
  19. SIMVASTATIN [Concomitant]
     Active Substance: SIMVASTATIN
     Route: 048
  20. VENLAFAXINE [Concomitant]
     Active Substance: VENLAFAXINE HYDROCHLORIDE
     Route: 048

REACTIONS (6)
  - Device leakage [Unknown]
  - Exposure via skin contact [Unknown]
  - Gastric infection [Unknown]
  - Product dose omission issue [Unknown]
  - Product complaint [Unknown]
  - Tremor [Unknown]

NARRATIVE: CASE EVENT DATE: 20231220
